FAERS Safety Report 11774369 (Version 4)
Quarter: 2019Q1

REPORT INFORMATION
  Report Type: Spontaneous
  Country: US (occurrence: US)
  Receive Date: 20151124
  Receipt Date: 20190118
  Transmission Date: 20190417
  Serious: Yes (Hospitalization, Other)
  Sender: FDA-Public Use
  Company Number: US-PFIZER INC-2015397179

PATIENT
  Age: 62 Year
  Sex: Male

DRUGS (11)
  1. SOMAVERT [Suspect]
     Active Substance: PEGVISOMANT
     Dosage: 20 MG, DAILY
  2. SOMAVERT [Suspect]
     Active Substance: PEGVISOMANT
     Dosage: 10 MG, DAILY
     Dates: start: 20110923
  3. VITAMIN C [Concomitant]
     Active Substance: ASCORBIC ACID
  4. VITAMIN D [Concomitant]
     Active Substance: CHOLECALCIFEROL
  5. SOMAVERT [Suspect]
     Active Substance: PEGVISOMANT
     Indication: ACROMEGALY
     Dosage: 10 MG, DAILY (UNDER THE SKIN)
  6. LEXAPRO [Concomitant]
     Active Substance: ESCITALOPRAM OXALATE
  7. LANSOPRAZOLE. [Concomitant]
     Active Substance: LANSOPRAZOLE
  8. LIPITOR [Concomitant]
     Active Substance: ATORVASTATIN CALCIUM
  9. CRANBERRY. [Concomitant]
     Active Substance: CRANBERRY
  10. CINNAMON. [Concomitant]
     Active Substance: CINNAMON
  11. FLOMAX [Concomitant]
     Active Substance: TAMSULOSIN HYDROCHLORIDE

REACTIONS (8)
  - Blood cholesterol increased [Unknown]
  - Low density lipoprotein increased [Unknown]
  - Chest discomfort [Unknown]
  - Headache [Unknown]
  - Endocarditis bacterial [Unknown]
  - Inflammatory bowel disease [Unknown]
  - Drug ineffective [Unknown]
  - Tension [Unknown]

NARRATIVE: CASE EVENT DATE: 20151104
